FAERS Safety Report 16662028 (Version 2)
Quarter: 2020Q1

REPORT INFORMATION
  Report Type: Report from Study
  Country: US (occurrence: US)
  Receive Date: 20190802
  Receipt Date: 20200129
  Transmission Date: 20200409
  Serious: No
  Sender: FDA-Public Use
  Company Number: US-EXELIXIS-CABO-19018346

PATIENT
  Age: 66 Year
  Sex: Male

DRUGS (16)
  1. NOVOLIN N [Concomitant]
     Active Substance: INSULIN HUMAN
  2. VENTOLIN [Concomitant]
     Active Substance: ALBUTEROL SULFATE
  3. ALLOPURINOL. [Concomitant]
     Active Substance: ALLOPURINOL
  4. CLARITIN [Concomitant]
     Active Substance: LORATADINE
  5. NORVASC [Concomitant]
     Active Substance: AMLODIPINE BESYLATE
  6. CABOMETYX [Suspect]
     Active Substance: CABOZANTINIB S-MALATE
     Indication: RENAL CANCER
     Dosage: 60 MG, QD
     Route: 048
     Dates: start: 20181221
  7. FLONASE [Concomitant]
     Active Substance: FLUTICASONE PROPIONATE
  8. LORAZEPAM. [Concomitant]
     Active Substance: LORAZEPAM
  9. IRON [Concomitant]
     Active Substance: IRON
  10. PRILOSEC [Concomitant]
     Active Substance: OMEPRAZOLE MAGNESIUM
  11. LOSARTAN. [Concomitant]
     Active Substance: LOSARTAN
  12. LEVEMIR [Concomitant]
     Active Substance: INSULIN DETEMIR
  13. LASIX [Concomitant]
     Active Substance: FUROSEMIDE
  14. VITAMIN D [Concomitant]
     Active Substance: VITAMIN D NOS
  15. ARANESP [Concomitant]
     Active Substance: DARBEPOETIN ALFA
  16. LIPITOR [Concomitant]
     Active Substance: ATORVASTATIN CALCIUM

REACTIONS (1)
  - Blood glucose decreased [Recovered/Resolved]

NARRATIVE: CASE EVENT DATE: 20190116
